FAERS Safety Report 9475550 (Version 1)
Quarter: 2013Q3

REPORT INFORMATION
  Report Type: Spontaneous
  Country: US (occurrence: None)
  Receive Date: 20130821
  Receipt Date: 20130821
  Transmission Date: 20140515
  Serious: Yes (Hospitalization, Other)
  Sender: FDA-Public Use
  Company Number: 201308000243

PATIENT
  Age: 4 Year
  Sex: Male

DRUGS (1)
  1. NITRIC OXIDE [Suspect]
     Indication: PULMONARY HYPERTENSION
     Dosage: 20 PPM, CONTINUOUS, INHALATION

REACTIONS (2)
  - Pulmonary oedema [None]
  - Off label use [None]
